FAERS Safety Report 12942156 (Version 2)
Quarter: 2017Q1

REPORT INFORMATION
  Report Type: Spontaneous
  Country: US (occurrence: US)
  Receive Date: 20161115
  Receipt Date: 20170220
  Transmission Date: 20170428
  Serious: Yes (Other)
  Sender: FDA-Public Use
  Company Number: US-JNJFOC-20161106442

PATIENT
  Sex: Male

DRUGS (4)
  1. RISPERDAL [Suspect]
     Active Substance: RISPERIDONE
     Indication: INTELLECTUAL DISABILITY
     Route: 048
     Dates: start: 20030915, end: 20031015
  2. RISPERDAL [Suspect]
     Active Substance: RISPERIDONE
     Indication: ABNORMAL BEHAVIOUR
     Route: 048
     Dates: start: 20030915, end: 20031015
  3. RISPERDAL [Suspect]
     Active Substance: RISPERIDONE
     Indication: ABNORMAL BEHAVIOUR
     Route: 048
     Dates: start: 20040226, end: 20040602
  4. RISPERDAL [Suspect]
     Active Substance: RISPERIDONE
     Indication: INTELLECTUAL DISABILITY
     Route: 048
     Dates: start: 20040226, end: 20040602

REACTIONS (3)
  - Gynaecomastia [Unknown]
  - Type 2 diabetes mellitus [Unknown]
  - Obesity [Unknown]

NARRATIVE: CASE EVENT DATE: 2003
